FAERS Safety Report 5485102-3 (Version None)
Quarter: 2007Q4

REPORT INFORMATION
  Report Type: 
  Country: None (occurrence: None)
  Receive Date: 20071015
  Receipt Date: 20071005
  Transmission Date: 20080405
  Serious: Yes (Hospitalization)
  Sender: FDA-Public Use
  Company Number: SE-JNJFOC-20071001336

PATIENT
  Age: 79 Year
  Sex: Female

DRUGS (14)
  1. DURAGESIC-100 [Suspect]
     Indication: ANALGESIA
     Route: 062
  2. IRBESARTAN [Concomitant]
     Route: 065
  3. LEVOTHYROXINE SODIUM [Concomitant]
     Route: 065
  4. FOSAMAX [Concomitant]
     Route: 065
  5. BEHEPAN [Concomitant]
     Route: 065
  6. OXYCONTIN [Concomitant]
     Route: 065
  7. ACETAMINOPHEN [Concomitant]
     Route: 065
  8. FENURIL [Concomitant]
     Dosage: 1X2
     Route: 065
  9. BACTRIM DS [Concomitant]
     Dosage: 800MG/160MG 1X2
     Route: 065
  10. ARTHROTEC [Concomitant]
     Dosage: 1X2
     Route: 065
  11. FOSAVANCE [Concomitant]
     Route: 065
  12. PRIMPERAN [Concomitant]
     Route: 065
  13. BETNOVAT [Concomitant]
     Route: 065
  14. OXYNORM [Concomitant]
     Route: 065

REACTIONS (5)
  - CONSTIPATION [None]
  - GENERAL PHYSICAL HEALTH DETERIORATION [None]
  - INAPPROPRIATE SCHEDULE OF DRUG ADMINISTRATION [None]
  - NAUSEA [None]
  - VOMITING [None]
